FAERS Safety Report 8716496 (Version 2)
Quarter: 2013Q4

REPORT INFORMATION
  Report Type: Spontaneous
  Country: US (occurrence: US)
  Receive Date: 20120810
  Receipt Date: 20131101
  Transmission Date: 20140711
  Serious: No
  Sender: FDA-Public Use
  Company Number: US-009507513-1208USA001214

PATIENT
  Age: 63 Year
  Sex: Male

DRUGS (4)
  1. PEGINTRON [Suspect]
     Indication: HEPATITIS C
     Dosage: UNK
     Route: 058
     Dates: start: 20051217, end: 200611
  2. PEGINTRON [Suspect]
     Dosage: UNK
     Route: 058
     Dates: start: 201204, end: 201205
  3. REBETOL [Suspect]
     Indication: HEPATITIS C
     Dosage: UNK
     Dates: start: 20051217, end: 200611
  4. REBETOL [Suspect]
     Dosage: UNK
     Dates: start: 201204, end: 201205

REACTIONS (1)
  - No therapeutic response [Unknown]
